FAERS Safety Report 12988208 (Version 3)
Quarter: 2017Q1

REPORT INFORMATION
  Report Type: Spontaneous
  Country: GB (occurrence: GB)
  Receive Date: 20161130
  Receipt Date: 20170110
  Transmission Date: 20170428
  Serious: Yes (Hospitalization)
  Sender: FDA-Public Use
  Company Number: GB-ABBVIE-16P-167-1793927-00

PATIENT
  Sex: Male
  Weight: 58.9 kg

DRUGS (1)
  1. DUODOPA [Suspect]
     Active Substance: CARBIDOPA\LEVODOPA
     Indication: PARKINSON^S DISEASE
     Dosage: ADMINISTERED OVER 24 HOURS, CALCULATED TOTAL DAILY DOSE 97ML OF THE 100ML CASSETTE
     Route: 050

REACTIONS (5)
  - Incorrect drug administration rate [Unknown]
  - Product use issue [Unknown]
  - Incorrect drug administration duration [Unknown]
  - Incorrect dose administered [Unknown]
  - Device issue [Unknown]
